FAERS Safety Report 4587701-X (Version None)
Quarter: 2005Q1

REPORT INFORMATION
  Report Type: 
  Country: None (occurrence: None)
  Receive Date: 20050125
  Receipt Date: 20040914
  Transmission Date: 20050727
  Serious: No
  Sender: FDA-Public Use
  Company Number: USA030434354

PATIENT
  Age: 55 Year
  Sex: Female
  Weight: 64 kg

DRUGS (4)
  1. FORTEO [Suspect]
     Indication: OSTEOPOROSIS
     Dosage: 20 UG EVERY OTHER DAY
     Dates: start: 20030101
  2. PROTONIX [Concomitant]
  3. VERAPAMIL [Concomitant]
  4. AMERGE [Concomitant]

REACTIONS (9)
  - DYSPHAGIA [None]
  - INJECTION SITE HAEMORRHAGE [None]
  - NAUSEA [None]
  - NEPHROLITHIASIS [None]
  - PAIN [None]
  - PHARYNGOLARYNGEAL PAIN [None]
  - SCAN WITH CONTRAST [None]
  - SENSATION OF FOREIGN BODY [None]
  - WEIGHT INCREASED [None]
